FAERS Safety Report 7720497-9 (Version None)
Quarter: 2011Q3

REPORT INFORMATION
  Report Type: 
  Country: None (occurrence: None)
  Receive Date: 20110831
  Receipt Date: 20110823
  Transmission Date: 20111222
  Serious: Yes (Life-Threatening, Hospitalization, Other)
  Sender: FDA-Public Use
  Company Number: GB-AMGEN-GBRSP2011030085

PATIENT
  Age: 43 Year
  Sex: Male

DRUGS (2)
  1. ENBREL [Suspect]
     Indication: ANKYLOSING SPONDYLITIS
     Dosage: UNK
     Dates: start: 20070401, end: 20090301
  2. ENBREL [Suspect]
     Dosage: UNK
     Dates: start: 20091201, end: 20100901

REACTIONS (8)
  - DRUG INEFFECTIVE [None]
  - ILEUS [None]
  - INFECTIOUS PERITONITIS [None]
  - COLITIS ULCERATIVE [None]
  - VOMITING [None]
  - IRITIS [None]
  - MALAISE [None]
  - HEPATIC FAILURE [None]
